FAERS Safety Report 6986090-0 (Version None)
Quarter: 2010Q3

REPORT INFORMATION
  Report Type: 
  Country: None (occurrence: None)
  Receive Date: 20100910
  Receipt Date: 20100901
  Transmission Date: 20110219
  Serious: Yes (Other)
  Sender: FDA-Public Use
  Company Number: 688016

PATIENT
  Age: 37 Year
  Sex: Male

DRUGS (11)
  1. CARBOPLATIN [Suspect]
     Indication: CHEMOTHERAPY
  2. CYCLOPHOSPHAMIDE [Suspect]
     Indication: CHEMOTHERAPY
  3. DOXORUBICIN HCL [Suspect]
     Indication: CHEMOTHERAPY
  4. ONCOVIN [Suspect]
     Indication: CHEMOTHERAPY
  5. (IFOSFAMIDE) [Concomitant]
     Indication: CHEMOTHERAPY
  6. ETOPOSIDE [Suspect]
     Indication: CHEMOTHERAPY
  7. GEMCITABINE [Suspect]
     Indication: CHEMOTHERAPY
  8. (VINORELBINE) [Concomitant]
     Indication: CHEMOTHERAPY
  9. LAMIVUDINE [Concomitant]
  10. PREDNISONE TAB [Concomitant]
  11. (RITUXIMAB) [Concomitant]

REACTIONS (4)
  - DISEASE RECURRENCE [None]
  - GENE MUTATION [None]
  - HEPATITIS B DNA INCREASED [None]
  - HEPATITIS B SURFACE ANTIGEN POSITIVE [None]
